FAERS Safety Report 8239419-X (Version None)
Quarter: 2012Q1

REPORT INFORMATION
  Report Type: 
  Country: None (occurrence: None)
  Receive Date: 20120328
  Receipt Date: 20120320
  Transmission Date: 20120608
  Serious: Yes (Hospitalization, Other)
  Sender: FDA-Public Use
  Company Number: US-BAYER-2011-022111

PATIENT
  Age: 20 Year
  Sex: Female
  Weight: 59 kg

DRUGS (11)
  1. YAZ [Suspect]
     Dosage: UNK
     Dates: start: 20080501
  2. YAZ [Suspect]
     Dosage: UNK
     Dates: start: 20080801
  3. YAZ [Suspect]
     Dosage: UNK
     Dates: start: 20080401
  4. YAZ [Suspect]
     Indication: PRODUCT USED FOR UNKNOWN INDICATION
     Dosage: UNK
     Route: 048
     Dates: start: 20090521, end: 20090601
  5. YAZ [Suspect]
     Dosage: UNK
     Dates: start: 20080601
  6. YAZ [Suspect]
     Dosage: UNK
     Dates: start: 20070901, end: 20080301
  7. PHENERGAN HCL [Concomitant]
     Dosage: UNK
     Dates: start: 20080701
  8. YAZ [Suspect]
     Dosage: UNK
     Dates: start: 20080901
  9. YAZ [Suspect]
     Dosage: UNK
     Dates: start: 20080701
  10. VICODIN [Concomitant]
     Dosage: UNK
     Dates: start: 20080701
  11. PERCOCET [Concomitant]
     Dosage: UNK
     Dates: start: 20080701

REACTIONS (12)
  - CHOLECYSTITIS CHRONIC [None]
  - FLATULENCE [None]
  - DIARRHOEA [None]
  - DEPRESSION [None]
  - DYSPEPSIA [None]
  - PROCEDURAL PAIN [None]
  - CONSTIPATION [None]
  - ABDOMINAL DISTENSION [None]
  - ANXIETY [None]
  - FRUSTRATION [None]
  - CHOLELITHIASIS [None]
  - SCAR [None]
